FAERS Safety Report 19158878 (Version 1)
Quarter: 2021Q2

REPORT INFORMATION
  Report Type: Spontaneous
  Country: US (occurrence: US)
  Receive Date: 20210420
  Receipt Date: 20210420
  Transmission Date: 20210717
  Serious: No
  Sender: FDA-Public Use
  Company Number: US-CURIUM-2021000318

PATIENT
  Age: 4 Year
  Sex: Male

DRUGS (3)
  1. TECHNESCAN MAG3 [Concomitant]
     Active Substance: TECHNETIUM TC-99M TIATIDE
     Route: 051
     Dates: start: 20210226, end: 20210226
  2. LASILIX [Concomitant]
     Active Substance: FUROSEMIDE
     Route: 065
     Dates: start: 20210226, end: 20210226
  3. ULTRA?TECHNEKOW [Suspect]
     Active Substance: TECHNETIUM TC-99M
     Route: 051
     Dates: start: 20210226, end: 20210226

REACTIONS (4)
  - Nausea [Recovered/Resolved]
  - Skin discolouration [Recovered/Resolved]
  - Rash [Recovered/Resolved]
  - Vomiting [Not Recovered/Not Resolved]

NARRATIVE: CASE EVENT DATE: 20210226
